FAERS Safety Report 6042130-7 (Version None)
Quarter: 2009Q1

REPORT INFORMATION
  Report Type: 
  Country: None (occurrence: None)
  Receive Date: 20090116
  Receipt Date: 20090113
  Transmission Date: 20090719
  Serious: Yes (Death)
  Sender: FDA-Public Use
  Company Number: PHBS2009ES00497

PATIENT
  Age: 66 Year
  Sex: Male

DRUGS (3)
  1. CYCLOSPORINE [Suspect]
     Indication: RENAL AND LIVER TRANSPLANT
  2. AZATHIOPRINE [Suspect]
     Indication: RENAL AND LIVER TRANSPLANT
  3. STEROIDS NOS [Suspect]
     Indication: RENAL AND LIVER TRANSPLANT

REACTIONS (1)
  - OESOPHAGEAL CARCINOMA [None]
